FAERS Safety Report 5752429-7 (Version None)
Quarter: 2008Q2

REPORT INFORMATION
  Report Type: 
  Country: None (occurrence: None)
  Receive Date: 20080529
  Receipt Date: 20080519
  Transmission Date: 20081010
  Serious: Yes (Hospitalization)
  Sender: FDA-Public Use
  Company Number: B0521052A

PATIENT
  Age: 65 Year
  Sex: Female

DRUGS (1)
  1. ARIXTRA [Suspect]
     Indication: ANTICOAGULANT THERAPY
     Dosage: .5MG UNKNOWN
     Dates: start: 20071116, end: 20071121

REACTIONS (4)
  - ANAEMIA [None]
  - HAEMATOMA [None]
  - HYPERTHERMIA [None]
  - RENAL FAILURE [None]
